FAERS Safety Report 9425647 (Version 1)
Quarter: 2013Q3

REPORT INFORMATION
  Report Type: Spontaneous
  Country: GB (occurrence: GB)
  Receive Date: 20130729
  Receipt Date: 20130729
  Transmission Date: 20140515
  Serious: Yes (Hospitalization)
  Sender: FDA-Public Use
  Company Number: GB-ROXANE LABORATORIES, INC.-2013-RO-01232RO

PATIENT
  Age: 56 Year
  Sex: Female

DRUGS (6)
  1. FUROSEMIDE [Suspect]
  2. FLUTICASONE [Concomitant]
  3. SALBUTAMOL [Concomitant]
  4. OMEPRAZOLE [Concomitant]
  5. SIMVASTATIN [Concomitant]
  6. DILTIAZEM [Concomitant]

REACTIONS (3)
  - Metabolic alkalosis [Recovered/Resolved]
  - Lobar pneumonia [Recovered/Resolved]
  - Asthma [Recovered/Resolved]
